FAERS Safety Report 5170832-3 (Version None)
Quarter: 2006Q4

REPORT INFORMATION
  Report Type: 
  Country: None (occurrence: None)
  Receive Date: 20061213
  Receipt Date: 20060622
  Transmission Date: 20070319
  Serious: Yes (Other)
  Sender: FDA-Public Use
  Company Number: 2006PK01371

PATIENT
  Age: 891 Month
  Sex: Female

DRUGS (6)
  1. ARIMIDEX [Suspect]
     Indication: BREAST CANCER FEMALE
     Route: 048
     Dates: start: 20051101
  2. TORSEMIDE [Concomitant]
  3. BISOBETA [Concomitant]
  4. BICANORM [Concomitant]
  5. OMEP [Concomitant]
  6. ASPIRIN [Concomitant]

REACTIONS (2)
  - BLOOD CREATININE INCREASED [None]
  - HEPATIC ENZYME INCREASED [None]
